FAERS Safety Report 8366971-6 (Version None)
Quarter: 2012Q2

REPORT INFORMATION
  Report Type: 
  Country: None (occurrence: None)
  Receive Date: 20120517
  Receipt Date: 20120515
  Transmission Date: 20120825
  Serious: Yes (Death, Other)
  Sender: FDA-Public Use
  Company Number: PHHY2012IT032775

PATIENT
  Sex: Male

DRUGS (1)
  1. AFINITOR [Suspect]
     Indication: RENAL CELL CARCINOMA
     Dosage: 10 MG, DAILY
     Route: 048
     Dates: start: 20120210, end: 20120309

REACTIONS (6)
  - NEOPLASM PROGRESSION [None]
  - DYSPNOEA [None]
  - NEOPLASM MALIGNANT [None]
  - PLEURAL EFFUSION [None]
  - FATIGUE [None]
  - INTERSTITIAL LUNG DISEASE [None]
